FAERS Safety Report 25551675 (Version 2)
Quarter: 2025Q3

REPORT INFORMATION
  Report Type: Spontaneous
  Country: US (occurrence: US)
  Receive Date: 20250714
  Receipt Date: 20250721
  Transmission Date: 20251020
  Serious: No
  Sender: CALLIDITAS THERAPEUTICS AB
  Company Number: US-Calliditas-2025CAL01949

PATIENT
  Age: 55 Year
  Sex: Female

DRUGS (23)
  1. TARPEYO [Suspect]
     Active Substance: BUDESONIDE
     Indication: IgA nephropathy
     Dosage: TAKE 4 CAPSULES (16 MG) BY MOUTH ONCE DAILY.
     Route: 048
     Dates: start: 20241005
  2. OMEPRAZOLE [Concomitant]
     Active Substance: OMEPRAZOLE
  3. FAMOTIDINE [Concomitant]
     Active Substance: FAMOTIDINE
  4. SENNA LEAF [Concomitant]
     Active Substance: SENNA LEAF
  5. DOCUSATE SODIUM [Concomitant]
     Active Substance: DOCUSATE SODIUM
  6. DICLOFENAC [Concomitant]
     Active Substance: DICLOFENAC
  7. MECLIZINE HYDROCHLORIDE [Concomitant]
     Active Substance: MECLIZINE HYDROCHLORIDE
  8. ZOLPIDEM [Concomitant]
     Active Substance: ZOLPIDEM TARTRATE
  9. CICLOPIROX [Concomitant]
     Active Substance: CICLOPIROX
  10. ATORVASTATIN [Concomitant]
     Active Substance: ATORVASTATIN
  11. TRAMADOL [Concomitant]
     Active Substance: TRAMADOL
  12. GABAPENTIN [Concomitant]
     Active Substance: GABAPENTIN
  13. FEXOFENADINE [Concomitant]
     Active Substance: FEXOFENADINE HYDROCHLORIDE
  14. FLUTICASONE [Concomitant]
     Active Substance: FLUTICASONE
  15. AZELASTINE [Concomitant]
     Active Substance: AZELASTINE
  16. LEXAPRO [Concomitant]
     Active Substance: ESCITALOPRAM OXALATE
  17. DULERA [Concomitant]
     Active Substance: FORMOTEROL FUMARATE DIHYDRATE\MOMETASONE FUROATE
  18. ARTIFICIAL TEARS [POLYVINYL ALCOHOL;POVIDONE] [Concomitant]
  19. MONTELUKAST [Concomitant]
     Active Substance: MONTELUKAST
  20. ALBUTEROL SULFATE [Concomitant]
     Active Substance: ALBUTEROL SULFATE
  21. MYCOPHENOLIC ACID [Concomitant]
     Active Substance: MYCOPHENOLIC ACID
  22. LOSARTAN [Concomitant]
     Active Substance: LOSARTAN
  23. ERGOCALCIFEROL [Concomitant]
     Active Substance: ERGOCALCIFEROL

REACTIONS (7)
  - Arthralgia [Not Recovered/Not Resolved]
  - Sciatica [Not Recovered/Not Resolved]
  - Joint swelling [Not Recovered/Not Resolved]
  - Joint swelling [Not Recovered/Not Resolved]
  - Increased appetite [Not Recovered/Not Resolved]
  - Heart rate increased [Not Recovered/Not Resolved]
  - Contusion [Not Recovered/Not Resolved]
